FAERS Safety Report 18726425 (Version 1)
Quarter: 2021Q1

REPORT INFORMATION
  Report Type: Spontaneous
  Country: IN (occurrence: IN)
  Receive Date: 20210111
  Receipt Date: 20210111
  Transmission Date: 20210419
  Serious: Yes (Other)
  Sender: FDA-Public Use
  Company Number: IN-ALLERGAN-2101156US

PATIENT
  Sex: Female

DRUGS (8)
  1. DICYCLOMINE HCL ? BP [Suspect]
     Active Substance: DICYCLOMINE HYDROCHLORIDE
     Indication: DYSMENORRHOEA
     Dosage: UNK
     Dates: start: 2007
  2. MEFENAMIC ACID. [Suspect]
     Active Substance: MEFENAMIC ACID
     Indication: STRESS
     Dosage: 10?15 TABLETS, QD
     Dates: start: 2014
  3. DICYCLOMINE HCL ? BP [Suspect]
     Active Substance: DICYCLOMINE HYDROCHLORIDE
     Dosage: UNK
     Dates: start: 2008
  4. DICYCLOMINE HCL ? BP [Suspect]
     Active Substance: DICYCLOMINE HYDROCHLORIDE
     Dosage: 2?3 TABLETS, QD
     Dates: start: 2008
  5. MEFENAMIC ACID. [Suspect]
     Active Substance: MEFENAMIC ACID
     Indication: HEADACHE
     Dosage: 2?3 TABLET, QD
     Dates: start: 2014
  6. DICYCLOMINE HCL ? BP [Suspect]
     Active Substance: DICYCLOMINE HYDROCHLORIDE
     Dosage: 10?15 TABLETS, QD
     Dates: start: 2008
  7. MEFENAMIC ACID. [Suspect]
     Active Substance: MEFENAMIC ACID
     Indication: NERVOUSNESS
     Dosage: UNK
     Dates: start: 2008
  8. MEFENAMIC ACID. [Suspect]
     Active Substance: MEFENAMIC ACID
     Indication: DYSMENORRHOEA
     Dosage: UNK
     Dates: start: 2007

REACTIONS (14)
  - Drug dependence [Recovered/Resolved]
  - Withdrawal syndrome [Recovered/Resolved]
  - Drug tolerance [Recovered/Resolved]
  - Overdose [Unknown]
  - Sleep disorder [Recovered/Resolved]
  - Hyperhidrosis [Recovered/Resolved]
  - Depressed mood [Recovered/Resolved]
  - Drug abuse [Unknown]
  - Adjustment disorder [Recovered/Resolved]
  - Anxiety [Recovered/Resolved]
  - Tachycardia [Recovered/Resolved]
  - Substance use disorder [Recovered/Resolved]
  - Headache [Recovered/Resolved]
  - Palpitations [Recovered/Resolved]
